FAERS Safety Report 19714638 (Version 7)
Quarter: 2022Q2

REPORT INFORMATION
  Report Type: Report from Study
  Country: US (occurrence: US)
  Receive Date: 20210818
  Receipt Date: 20220402
  Transmission Date: 20220721
  Serious: No
  Sender: FDA-Public Use
  Company Number: NVSC2021US184519

PATIENT
  Age: 65 Year
  Sex: Male

DRUGS (1)
  1. ENTRESTO [Suspect]
     Active Substance: SACUBITRIL\VALSARTAN
     Indication: Product used for unknown indication
     Dosage: UNK UNK, BID
     Route: 048
     Dates: start: 202104

REACTIONS (10)
  - Memory impairment [Not Recovered/Not Resolved]
  - Contusion [Unknown]
  - Hypoacusis [Unknown]
  - Malaise [Unknown]
  - Lung disorder [Unknown]
  - Chest pain [Recovering/Resolving]
  - Dysphonia [Unknown]
  - Hypersensitivity [Unknown]
  - Vertigo [Unknown]
  - Product dose omission issue [Unknown]

NARRATIVE: CASE EVENT DATE: 20210901
